FAERS Safety Report 8377936-2 (Version None)
Quarter: 2012Q2

REPORT INFORMATION
  Report Type: 
  Country: None (occurrence: None)
  Receive Date: 20120522
  Receipt Date: 20120507
  Transmission Date: 20120825
  Serious: Yes (Hospitalization)
  Sender: FDA-Public Use
  Company Number: CHPA2012US010690

PATIENT
  Age: 77 Year
  Sex: Female

DRUGS (2)
  1. BENEFIBER STICK PACKS [Suspect]
     Dosage: UNK
     Dates: start: 20120506
  2. BENEFIBER STICK PACKS [Suspect]
     Indication: COLITIS
     Dosage: 1 STICK A DAY
     Route: 048
     Dates: start: 20120113, end: 20120420

REACTIONS (3)
  - DIVERTICULITIS [None]
  - OFF LABEL USE [None]
  - ABDOMINAL PAIN UPPER [None]
